FAERS Safety Report 17996100 (Version 1)
Quarter: 2020Q3

REPORT INFORMATION
  Report Type: Spontaneous
  Country: ES (occurrence: ES)
  Receive Date: 20200708
  Receipt Date: 20200708
  Transmission Date: 20201103
  Serious: Yes (Other)
  Sender: FDA-Public Use
  Company Number: ES-TEVA-2020-ES-1797383

PATIENT
  Age: 55 Year
  Sex: Male

DRUGS (10)
  1. CEFTRIAXONA 2.000 MG INYECTABLE IV [Suspect]
     Active Substance: CEFTRIAXONE
     Indication: COVID-19 PNEUMONIA
     Dosage: 2 GM, FORM OF ADMIN. TEXT : INJECTION IV
     Route: 042
     Dates: start: 20200327, end: 20200407
  2. OMEPRAZOL 20 MG CAPSULA [Concomitant]
  3. PARACETAMOL 1.000 MG INYECTABLE PERFUSION 100 ML [Concomitant]
  4. LOPINAVIR/RITONAVIR 200 MG/50 MG COMPRIMIDO [Suspect]
     Active Substance: LOPINAVIR\RITONAVIR
     Indication: COVID-19 PNEUMONIA
     Dosage: 2 DOSAGE FORMS
     Route: 048
     Dates: start: 20200326, end: 20200408
  5. DOLQUINE 200 MG COMPRIMIDOS RECUBIERTOS [Suspect]
     Active Substance: HYDROXYCHLOROQUINE SULFATE
     Indication: COVID-19 PNEUMONIA
     Dosage: 200 MG
     Route: 048
     Dates: start: 20200326, end: 20200405
  6. METAMIZOL 2.000 MG INYECTABLE 5 ML [Concomitant]
     Active Substance: METAMIZOLE
  7. METILPREDNISOLONA (888A) [Suspect]
     Active Substance: METHYLPREDNISOLONE
     Indication: COVID-19 PNEUMONIA
     Dosage: DAY 1: BOLUS OF 80MG, FROM 08/04 TO 16/04 IN DESCENDING GUIDE, UNIT DOSE: 40 MG
     Route: 065
     Dates: start: 20200327, end: 20200416
  8. AZITROMICINA (7019A) [Suspect]
     Active Substance: AZITHROMYCIN
     Indication: COVID-19 PNEUMONIA
     Dosage: 500 MG
     Route: 065
     Dates: start: 20200327, end: 20200402
  9. CLEXANE 4.000 UI (40 MG)/ 0,4 ML  SOLUCION INYECTABLE EN JERINGA PRECA [Concomitant]
     Active Substance: ENOXAPARIN SODIUM
  10. METOCLOPRAMIDA 10 MG INYECTABLE 2 ML [Concomitant]

REACTIONS (1)
  - Retinal detachment [Unknown]

NARRATIVE: CASE EVENT DATE: 20200622
